FAERS Safety Report 7377318-6 (Version None)
Quarter: 2011Q1

REPORT INFORMATION
  Report Type: 
  Country: None (occurrence: None)
  Receive Date: 20110328
  Receipt Date: 20110317
  Transmission Date: 20110831
  Serious: Yes (Hospitalization)
  Sender: FDA-Public Use
  Company Number: IT-JNJFOC-20110307866

PATIENT
  Sex: Male

DRUGS (2)
  1. SERENASE [Concomitant]
     Indication: ILL-DEFINED DISORDER
     Route: 065
  2. RISPERDAL [Suspect]
     Indication: HEADACHE
     Route: 048

REACTIONS (4)
  - PSYCHOMOTOR HYPERACTIVITY [None]
  - OFF LABEL USE [None]
  - VOMITING [None]
  - INFREQUENT BOWEL MOVEMENTS [None]
